FAERS Safety Report 5536090-2 (Version None)
Quarter: 2007Q4

REPORT INFORMATION
  Report Type: 
  Country: None (occurrence: None)
  Receive Date: 20071204
  Receipt Date: 20071120
  Transmission Date: 20080405
  Serious: Yes (Hospitalization)
  Sender: FDA-Public Use
  Company Number: 2007S1012194

PATIENT
  Age: 84 Year
  Sex: Male

DRUGS (8)
  1. METOLAZONE [Suspect]
     Indication: OEDEMA
     Dosage: 2.5 MG; EVERY OTHER DAY; ORAL
     Route: 048
     Dates: start: 20071106, end: 20071114
  2. AMARYL [Concomitant]
  3. AMLODIPINE [Concomitant]
  4. LEVOXYL [Concomitant]
  5. DIOVAN [Concomitant]
  6. FUROSEMIDE [Concomitant]
  7. TOPROL-XL [Concomitant]
  8. DIGOXIN [Concomitant]

REACTIONS (12)
  - BLOOD GLUCOSE INCREASED [None]
  - CONSTIPATION [None]
  - CONTUSION [None]
  - DEHYDRATION [None]
  - DIZZINESS [None]
  - FALL [None]
  - HEADACHE [None]
  - LOSS OF CONSCIOUSNESS [None]
  - NAUSEA [None]
  - ORTHOSTATIC HYPOTENSION [None]
  - PERICARDIAL EFFUSION [None]
  - PLEURAL EFFUSION [None]
